FAERS Safety Report 17572554 (Version 2)
Quarter: 2020Q2

REPORT INFORMATION
  Report Type: Spontaneous
  Country: US (occurrence: US)
  Receive Date: 20200323
  Receipt Date: 20200408
  Transmission Date: 20200713
  Serious: Yes (Other)
  Sender: FDA-Public Use
  Company Number: US-TASMAN PHARMA, INC.-2020TSM00136

PATIENT
  Age: 22 Year
  Sex: Male
  Weight: 74.38 kg

DRUGS (9)
  1. BENZTROPINE. [Concomitant]
     Active Substance: BENZTROPINE
  2. CLOZAPINE (TEVA) [Suspect]
     Active Substance: CLOZAPINE
     Dosage: DOSE DECREASED
     Route: 048
     Dates: start: 20200310
  3. CLOZAPINE (TEVA) [Suspect]
     Active Substance: CLOZAPINE
     Indication: BIPOLAR DISORDER
     Dosage: 75 MG, 1X/DAY IN THE EVENING (TOTAL DOSE 175 MG)
     Route: 048
     Dates: start: 201804, end: 20200309
  4. CLOZAPINE. [Suspect]
     Active Substance: CLOZAPINE
     Dosage: UNK
  5. CLOZAPINE (TEVA) [Suspect]
     Active Substance: CLOZAPINE
     Indication: BIPOLAR DISORDER
     Dosage: 200 MG, 1X/DAY IN THE MORNING
     Route: 048
     Dates: start: 201804, end: 20200309
  6. VITAMIN E [Concomitant]
     Active Substance: .ALPHA.-TOCOPHEROL
  7. CLARITIN [Concomitant]
     Active Substance: LORATADINE
  8. BENZOYL PEROXIDE. [Concomitant]
     Active Substance: BENZOYL PEROXIDE
  9. CLOZAPINE (TEVA) [Suspect]
     Active Substance: CLOZAPINE
     Indication: BIPOLAR DISORDER
     Dosage: 100 MG, 1X/DAY IN THE EVENING (TOTAL DOSE 175 MG)
     Route: 048
     Dates: start: 201804, end: 20200309

REACTIONS (1)
  - Neutropenia [Recovering/Resolving]

NARRATIVE: CASE EVENT DATE: 20200309
